FAERS Safety Report 8246134-5 (Version None)
Quarter: 2012Q1

REPORT INFORMATION
  Report Type: 
  Country: None (occurrence: None)
  Receive Date: 20120328
  Receipt Date: 20120328
  Transmission Date: 20120608
  Serious: No
  Sender: FDA-Public Use
  Company Number: None

PATIENT
  Age: 63 Year
  Sex: Male
  Weight: 79.3795 kg

DRUGS (1)
  1. ROPINIROLE HYDROCHLORIDE [Suspect]
     Indication: PERIODIC LIMB MOVEMENT DISORDER
     Dosage: ONE TABLET ONCE A DAY AT BEDTIME ORALLY
     Route: 048
     Dates: start: 20120301

REACTIONS (2)
  - ABDOMINAL DISTENSION [None]
  - INSOMNIA [None]
